FAERS Safety Report 20794256 (Version 1)
Quarter: 2022Q2

REPORT INFORMATION
  Report Type: Spontaneous
  Country: JP (occurrence: JP)
  Receive Date: 20220506
  Receipt Date: 20220506
  Transmission Date: 20220721
  Serious: Yes (Other)
  Sender: FDA-Public Use
  Company Number: JP-JNJFOC-20220511100

PATIENT
  Age: 63 Year
  Sex: Male

DRUGS (1)
  1. MINOXIDIL [Suspect]
     Active Substance: MINOXIDIL
     Indication: Androgenetic alopecia
     Route: 061

REACTIONS (3)
  - Glaucoma [Not Recovered/Not Resolved]
  - Retinal drusen [Not Recovered/Not Resolved]
  - Blood pressure increased [Recovering/Resolving]
